FAERS Safety Report 17315368 (Version 1)
Quarter: 2020Q1

REPORT INFORMATION
  Report Type: Spontaneous
  Country: US (occurrence: US)
  Receive Date: 20200124
  Receipt Date: 20200124
  Transmission Date: 20200409
  Serious: Yes (Death, Hospitalization, Other)
  Sender: FDA-Public Use
  Company Number: US-ROCHE-2524355

PATIENT
  Age: 68 Year
  Sex: Male

DRUGS (20)
  1. CLOPIDOGREL [Concomitant]
     Active Substance: CLOPIDOGREL BISULFATE
     Route: 048
  2. NEORAL [Concomitant]
     Active Substance: CYCLOSPORINE
     Route: 046
  3. FLUOXETINE [Concomitant]
     Active Substance: FLUOXETINE HYDROCHLORIDE
     Route: 048
  4. HYDRALAZINE [Concomitant]
     Active Substance: HYDRALAZINE HYDROCHLORIDE
     Route: 065
  5. FOLIC ACID. [Concomitant]
     Active Substance: FOLIC ACID
     Route: 048
  6. CHOLECALCIFEROL [Concomitant]
     Active Substance: CHOLECALCIFEROL
     Dosage: 1000 IU
     Route: 048
  7. LANTUS [Concomitant]
     Active Substance: INSULIN GLARGINE
     Dosage: NO 100 UNITS PER ML NIGHTLY, 7 UNITS NIGHTLY
     Route: 058
  8. ISOSORBIDE MONONITRATE. [Concomitant]
     Active Substance: ISOSORBIDE MONONITRATE
     Route: 048
  9. NITROSTAT [Concomitant]
     Active Substance: NITROGLYCERIN
     Dosage: ONGOING: NO AS NEEDED FOR CHEST PAIN
     Route: 060
  10. PROTONIX [Concomitant]
     Active Substance: PANTOPRAZOLE SODIUM
     Route: 065
  11. RANOLAZINE. [Concomitant]
     Active Substance: RANOLAZINE
     Route: 065
     Dates: start: 20190118
  12. CLONAZEPAM. [Suspect]
     Active Substance: CLONAZEPAM
     Indication: INSOMNIA
     Route: 065
  13. ASPIRIN [ACETYLSALICYLIC ACID] [Concomitant]
     Active Substance: ASPIRIN
     Route: 048
  14. FENTANYL. [Concomitant]
     Active Substance: FENTANYL
     Dosage: 75 MCG PER HOUR
     Route: 062
  15. MELATONIN [Concomitant]
     Active Substance: MELATONIN
     Dosage: NO ONCE A NIGHT
     Route: 065
  16. CELLCEPT [Suspect]
     Active Substance: MYCOPHENOLATE MOFETIL\MYCOPHENOLATE MOFETIL HYDROCHLORIDE
     Indication: LIVER TRANSPLANT
  17. HUMALOG [Concomitant]
     Active Substance: INSULIN LISPRO
     Dosage: NO 100 UNITS PER ML, SLIDING SCALE, AS NEEDED
     Route: 065
  18. MULTIVITAMIN WITH MINERALS [Concomitant]
     Active Substance: MINERALS\VITAMINS
     Route: 065
  19. CELLCEPT [Suspect]
     Active Substance: MYCOPHENOLATE MOFETIL\MYCOPHENOLATE MOFETIL HYDROCHLORIDE
     Indication: LIVER TRANSPLANT
     Dosage: PER SMN ON FILE DATED 2/7/2019
     Route: 048
  20. WELCHOL [Concomitant]
     Active Substance: COLESEVELAM HYDROCHLORIDE
     Route: 048

REACTIONS (7)
  - Fall [Unknown]
  - Loss of consciousness [Unknown]
  - Death [Fatal]
  - Myocardial infarction [Unknown]
  - Insomnia [Unknown]
  - Off label use [Unknown]
  - Dementia [Unknown]

NARRATIVE: CASE EVENT DATE: 20190924
